FAERS Safety Report 5887742-6 (Version None)
Quarter: 2008Q3

REPORT INFORMATION
  Report Type: 
  Country: None (occurrence: None)
  Receive Date: 20080918
  Receipt Date: 20080908
  Transmission Date: 20090109
  Serious: Yes (Death)
  Sender: FDA-Public Use
  Company Number: JP-ABBOTT-08P-086-0476724-00

PATIENT
  Age: 63 Year
  Sex: Male

DRUGS (3)
  1. LEUPROLIDE ACETATE [Suspect]
     Indication: PROSTATE CANCER
     Route: 058
     Dates: start: 20060220, end: 20070202
  2. LEUPROLIDE ACETATE [Suspect]
     Dates: start: 20050926, end: 20060123
  3. BICALUTAMIDE [Concomitant]
     Indication: PROSTATE CANCER
     Route: 048
     Dates: end: 20070309

REACTIONS (1)
  - PROSTATE CANCER [None]
